FAERS Safety Report 4459370-0 (Version None)
Quarter: 2004Q3

REPORT INFORMATION
  Report Type: 
  Country: None (occurrence: None)
  Receive Date: 20040927
  Receipt Date: 20040917
  Transmission Date: 20050211
  Serious: Yes (Hospitalization)
  Sender: FDA-Public Use
  Company Number: FR-ROCHE-380931

PATIENT
  Age: 13 Year
  Sex: Male

DRUGS (1)
  1. ROVALCYTE [Suspect]
     Route: 065
     Dates: end: 20040914

REACTIONS (3)
  - DRUG LEVEL INCREASED [None]
  - ENCEPHALITIS [None]
  - OVERDOSE [None]
